FAERS Safety Report 16123386 (Version 1)
Quarter: 2019Q1

REPORT INFORMATION
  Report Type: Spontaneous
  Country: US (occurrence: US)
  Receive Date: 20190327
  Receipt Date: 20190327
  Transmission Date: 20190418
  Serious: Yes (Hospitalization)
  Sender: FDA-Public Use
  Company Number: US-VERTEX PHARMACEUTICALS-2019-002484

PATIENT
  Age: 20 Year
  Sex: Female

DRUGS (12)
  1. PULMOZYME [Concomitant]
     Active Substance: DORNASE ALFA
     Dosage: 2.5 MILLILITER, QD
     Route: 055
  2. REMERON [Concomitant]
     Active Substance: MIRTAZAPINE
     Dosage: 15 MG
  3. HYPERSAL [Concomitant]
     Dosage: UNK
  4. SYMDEKO [Suspect]
     Active Substance: IVACAFTOR\TEZACAFTOR
     Indication: CYSTIC FIBROSIS
     Dosage: UNK, BID
     Route: 048
  5. CREON [Concomitant]
     Active Substance: PANCRELIPASE AMYLASE\PANCRELIPASE LIPASE\PANCRELIPASE PROTEASE
     Dosage: UNK
  6. ALBUTEROL SULFATE. [Concomitant]
     Active Substance: ALBUTEROL SULFATE
     Dosage: UNK
  7. QVAR [Concomitant]
     Active Substance: BECLOMETHASONE DIPROPIONATE
     Dosage: 40 MICROGRAM
  8. HUMALOG [Concomitant]
     Active Substance: INSULIN LISPRO
     Dosage: 100 UT/ML
  9. VITAMIN D3 [Concomitant]
     Active Substance: CHOLECALCIFEROL
     Dosage: 10000 UT
  10. TRAMADOL. [Concomitant]
     Active Substance: TRAMADOL
     Dosage: 50 MG
  11. PREVACID [Concomitant]
     Active Substance: LANSOPRAZOLE
     Dosage: 15 MG
  12. CAYSTON [Concomitant]
     Active Substance: AZTREONAM
     Dosage: 75 MG, TID
     Route: 055

REACTIONS (1)
  - Hospitalisation [Not Recovered/Not Resolved]

NARRATIVE: CASE EVENT DATE: 201903
